FAERS Safety Report 10229866 (Version 1)
Quarter: 2014Q2

REPORT INFORMATION
  Report Type: Spontaneous
  Country: US (occurrence: None)
  Receive Date: 20140609
  Receipt Date: 20140609
  Transmission Date: 20141212
  Serious: Yes (Hospitalization, Other)
  Sender: FDA-Public Use
  Company Number: 2014-US-006799

PATIENT
  Age: 28 Year
  Sex: Female
  Weight: 45.8 kg

DRUGS (1)
  1. XYREM [Suspect]
     Indication: NARCOLEPSY
     Route: 048
     Dates: start: 201401, end: 2014

REACTIONS (10)
  - Asthenia [None]
  - Feeling abnormal [None]
  - Depression [None]
  - Nervousness [None]
  - Anxiety [None]
  - Weight decreased [None]
  - Sensitivity of teeth [None]
  - Seborrhoea [None]
  - Seborrhoea [None]
  - Acne [None]
